FAERS Safety Report 5535234-6 (Version None)
Quarter: 2007Q4

REPORT INFORMATION
  Report Type: 
  Country: None (occurrence: None)
  Receive Date: 20071206
  Receipt Date: 20071127
  Transmission Date: 20080405
  Serious: Yes (Life-Threatening)
  Sender: FDA-Public Use
  Company Number: DE-BAYER-200610459BVD

PATIENT
  Age: 59 Year
  Sex: Male
  Weight: 110 kg

DRUGS (9)
  1. AVELOX [Suspect]
     Indication: BRONCHITIS
     Route: 042
     Dates: start: 20060331, end: 20060401
  2. AMARYL [Concomitant]
  3. PANTOPRAZOLE SODIUM [Concomitant]
  4. ARELIX [Concomitant]
  5. RAMIPRIL [Concomitant]
  6. NOVALGIN [Concomitant]
  7. FURORESE [Concomitant]
  8. RAMIPRIL [Concomitant]
  9. LANTUS [Concomitant]

REACTIONS (1)
  - HEPATIC FAILURE [None]
